FAERS Safety Report 5613553-2 (Version None)
Quarter: 2008Q1

REPORT INFORMATION
  Report Type: 
  Country: None (occurrence: None)
  Receive Date: 20080130
  Receipt Date: 20080114
  Transmission Date: 20080703
  Serious: Yes (Death)
  Sender: FDA-Public Use
  Company Number: 2008S1000109

PATIENT
  Age: 52 Year
  Sex: Female

DRUGS (8)
  1. METHADONE HCL [Suspect]
     Dosage: ; PO
     Route: 048
     Dates: end: 20060101
  2. AMITRIPTYLINE HCL [Suspect]
     Dosage: ; PO
     Route: 048
     Dates: end: 20060101
  3. CYCLIC ANTIDEPRESSANTS [Suspect]
     Dosage: ; PO
     Route: 048
     Dates: end: 20060101
  4. VERAPAMIL [Suspect]
     Dosage: ; PO
     Route: 048
     Dates: end: 20060101
  5. GABAPENTIN [Suspect]
     Dosage: ; PO
     Route: 048
     Dates: end: 20060101
  6. PROCHLORPERAZINE [Suspect]
     Dosage: ; PO
     Route: 048
     Dates: end: 20060101
  7. DIAZEPAM [Suspect]
     Dosage: ; PO
     Route: 048
     Dates: end: 20060101
  8. BACLOFEN [Suspect]
     Dosage: ; PO
     Route: 048
     Dates: end: 20060101

REACTIONS (3)
  - CARDIAC ARREST [None]
  - COMPLETED SUICIDE [None]
  - RESPIRATORY ARREST [None]
